FAERS Safety Report 25750882 (Version 1)
Quarter: 2025Q3

REPORT INFORMATION
  Report Type: Spontaneous
  Country: GB (occurrence: GB)
  Receive Date: 20250902
  Receipt Date: 20250902
  Transmission Date: 20251020
  Serious: Yes (Hospitalization)
  Sender: SANOFI AVENTIS
  Company Number: GB-SA-2025SA259561

PATIENT
  Sex: Female

DRUGS (2)
  1. DUPIXENT [Suspect]
     Active Substance: DUPILUMAB
     Indication: Eczema
     Dates: start: 202502, end: 20250404
  2. DULOXETINE [Concomitant]
     Active Substance: DULOXETINE

REACTIONS (13)
  - Mental disorder [Unknown]
  - Decreased appetite [Unknown]
  - Weight decreased [Unknown]
  - Butterfly rash [Unknown]
  - Chest discomfort [Unknown]
  - Amnesia [Not Recovered/Not Resolved]
  - Cyanosis [Unknown]
  - Palpitations [Not Recovered/Not Resolved]
  - Oral candidiasis [Not Recovered/Not Resolved]
  - Confusional state [Not Recovered/Not Resolved]
  - Alopecia [Not Recovered/Not Resolved]
  - Impaired quality of life [Unknown]
  - Eczema [Unknown]

NARRATIVE: CASE EVENT DATE: 20250101
